FAERS Safety Report 9352477 (Version 1)
Quarter: 2013Q2

REPORT INFORMATION
  Report Type: Spontaneous
  Country: US (occurrence: US)
  Receive Date: 20130617
  Receipt Date: 20130617
  Transmission Date: 20140414
  Serious: Yes (Other)
  Sender: FDA-Public Use
  Company Number: US-RB-054941-13

PATIENT
  Sex: Female

DRUGS (1)
  1. SUBOXONE FILM [Suspect]
     Indication: PRODUCT USED FOR UNKNOWN INDICATION
     Dosage: SUBOXONE FILM; DOSING DETAILS UNKNOWN
     Route: 065

REACTIONS (7)
  - Chromaturia [Unknown]
  - Fatigue [Unknown]
  - Dizziness [Unknown]
  - Disturbance in attention [Unknown]
  - Fatigue [Unknown]
  - Hypersomnia [Unknown]
  - Underdose [Unknown]
